FAERS Safety Report 4476030-0 (Version None)
Quarter: 2004Q4

REPORT INFORMATION
  Report Type: 
  Country: None (occurrence: None)
  Receive Date: 20041012
  Receipt Date: 20040929
  Transmission Date: 20050328
  Serious: Yes (Hospitalization, Other)
  Sender: FDA-Public Use
  Company Number: HQWYE452320AUG04

PATIENT
  Age: 53 Year
  Sex: Female
  Weight: 122.13 kg

DRUGS (19)
  1. ZOSYN [Suspect]
     Indication: PSEUDOMONAS INFECTION
     Dosage: 3.375 G 1X PER 8 HR., INTRAVENOUS
     Route: 042
     Dates: start: 20040702, end: 20040720
  2. ZOSYN [Suspect]
     Indication: STAPHYLOCOCCAL INFECTION
     Dosage: 3.375 G 1X PER 8 HR., INTRAVENOUS
     Route: 042
     Dates: start: 20040702, end: 20040720
  3. METRONIDAZOLE [Concomitant]
  4. MORPHINE SULFATE [Concomitant]
  5. VANCOMYCIN [Concomitant]
  6. AMIKACIN [Concomitant]
  7. CORDARONE [Concomitant]
  8. BACTRIM [Concomitant]
  9. SOLU-MEDROL [Concomitant]
  10. NITROGLYCERIN TRANSDERMAL SYSTEM (GLYCERYL TRINITRATE) [Concomitant]
  11. METOPROLOL TARTRATE [Concomitant]
  12. FUROSEMIDE [Concomitant]
  13. TRILEPTAL [Concomitant]
  14. PHENOBARBITAL TAB [Concomitant]
  15. BUDESONIDE (BUDESONIDE) [Concomitant]
  16. ALBUTEROL [Concomitant]
  17. LANSOPRAZOLE [Concomitant]
  18. HEPARIN [Concomitant]
  19. TYLENOL [Concomitant]

REACTIONS (3)
  - HEPATIC ENZYME INCREASED [None]
  - NEPHRITIS INTERSTITIAL [None]
  - TOXIC EPIDERMAL NECROLYSIS [None]
